FAERS Safety Report 7649166-0 (Version None)
Quarter: 2011Q3

REPORT INFORMATION
  Report Type: 
  Country: None (occurrence: None)
  Receive Date: 20110720
  Receipt Date: 20110711
  Transmission Date: 20111222
  Serious: Yes (Death)
  Sender: FDA-Public Use
  Company Number: 2011029157

PATIENT
  Age: 67 Year
  Sex: Female
  Weight: 84.8226 kg

DRUGS (32)
  1. HIZENTRA [Suspect]
     Indication: ALPHA-1 ANTI-TRYPSIN DEFICIENCY
     Dosage: SEE IMAGE
     Route: 058
     Dates: start: 20101129, end: 20110414
  2. HIZENTRA [Suspect]
     Indication: IMMUNODEFICIENCY COMMON VARIABLE
     Dosage: SEE IMAGE
     Route: 058
     Dates: start: 20101129, end: 20110414
  3. HIZENTRA [Suspect]
     Indication: OBSTRUCTIVE AIRWAYS DISORDER
  4. PYRIDOXINE (PYRIDOXINE) [Concomitant]
  5. ETHAMBUTOL HYDROCHLORIDE [Concomitant]
  6. REQUIP [Concomitant]
  7. AZATHIOPRINE [Concomitant]
  8. COUMADIN [Concomitant]
  9. ASPIRIN [Concomitant]
  10. PREVACID [Concomitant]
  11. LASIX [Concomitant]
  12. AMBIEN [Concomitant]
  13. ATENOLOL [Concomitant]
  14. FERROUS GLUCONATE (FERROUS GLUCONATE) [Concomitant]
  15. CALCIUM (CALCIUM) [Concomitant]
  16. XALATAN [Concomitant]
  17. VALCYTE [Concomitant]
  18. PREDNISONE [Concomitant]
  19. MULTIVITAMIN (ACCOMIN MULTIVITAMIN) [Concomitant]
  20. PROGRAF [Concomitant]
  21. ONDANSETRON [Concomitant]
  22. PROMETHAZINE [Concomitant]
  23. ITRACONAZOLE [Concomitant]
  24. ACETAMINOPHEN [Concomitant]
  25. SPS [Concomitant]
  26. AZITHROMYCIN [Concomitant]
  27. FORTEO [Concomitant]
  28. ISONIAZID [Concomitant]
  29. COSOPT (COSPOT /01419801/) [Concomitant]
  30. IMODIUM (LOPERAMIDE HYDROCHLOIRDE) [Concomitant]
  31. BACTRIM [Concomitant]
  32. CARDIZEM [Concomitant]

REACTIONS (4)
  - LUNG TRANSPLANT [None]
  - PRODUCTIVE COUGH [None]
  - PALPITATIONS [None]
  - LOW CARDIAC OUTPUT SYNDROME [None]
